FAERS Safety Report 20882080 (Version 1)
Quarter: 2022Q2

REPORT INFORMATION
  Report Type: Spontaneous
  Country: FR (occurrence: FR)
  Receive Date: 20220527
  Receipt Date: 20220527
  Transmission Date: 20220721
  Serious: Yes (Hospitalization, Other)
  Sender: FDA-Public Use
  Company Number: FR-SUN PHARMACEUTICAL INDUSTRIES LTD-2021R1-337893

PATIENT
  Sex: Female
  Weight: 3.02 kg

DRUGS (1)
  1. BACLOFEN [Suspect]
     Active Substance: BACLOFEN
     Indication: Dystonia
     Dosage: 10 MILLIGRAM, QID
     Route: 064

REACTIONS (3)
  - Oesophagitis [Unknown]
  - Foetal exposure during pregnancy [Unknown]
  - Premature baby [Unknown]
